FAERS Safety Report 9785382 (Version 2)
Quarter: 2015Q1

REPORT INFORMATION
  Report Type: Spontaneous
  Country: US (occurrence: None)
  Receive Date: 20131224
  Receipt Date: 20150302
  Transmission Date: 20150721
  Serious: Yes (Hospitalization)
  Sender: FDA-Public Use
  Company Number: 2079174

PATIENT
  Sex: Female

DRUGS (2)
  1. METRONIDAZOLE. [Suspect]
     Active Substance: METRONIDAZOLE
     Dosage: 0
     Route: 050
  2. MILRINONE LACTATE. [Suspect]
     Active Substance: MILRINONE LACTATE
     Route: 041

REACTIONS (7)
  - Product label on wrong product [None]
  - Hypertension [None]
  - Product label confusion [None]
  - Medication error [None]
  - Wrong drug administered [None]
  - Bradycardia [None]
  - Drug dispensing error [None]

NARRATIVE: CASE EVENT DATE: 201312
